FAERS Safety Report 18593054 (Version 1)
Quarter: 2020Q4

REPORT INFORMATION
  Report Type: Spontaneous
  Country: US (occurrence: US)
  Receive Date: 20201209
  Receipt Date: 20201209
  Transmission Date: 20210114
  Serious: No
  Sender: FDA-Public Use
  Company Number: US-BION-008466

PATIENT
  Age: 66 Year
  Sex: Male

DRUGS (4)
  1. XTANDI [Interacting]
     Active Substance: ENZALUTAMIDE
     Indication: HORMONE-REFRACTORY PROSTATE CANCER
     Dosage: ONCE DAILY
     Route: 048
     Dates: start: 201602
  2. XTANDI [Interacting]
     Active Substance: ENZALUTAMIDE
     Indication: HORMONE-REFRACTORY PROSTATE CANCER
     Dosage: ONCE DAILY
     Route: 048
     Dates: start: 201702
  3. BIONPHARMA^S VITAMIN D [Suspect]
     Active Substance: ERGOCALCIFEROL
     Indication: PRODUCT USED FOR UNKNOWN INDICATION
     Route: 065
  4. IRON [Suspect]
     Active Substance: IRON
     Indication: PRODUCT USED FOR UNKNOWN INDICATION
     Dosage: ONCE DAILY
     Route: 065

REACTIONS (16)
  - Faeces discoloured [Recovered/Resolved]
  - Drug interaction [Unknown]
  - Formication [Recovered/Resolved]
  - Peripheral swelling [Not Recovered/Not Resolved]
  - Constipation [Recovered/Resolved]
  - Restless legs syndrome [Recovered/Resolved]
  - Hot flush [Not Recovered/Not Resolved]
  - Inability to afford medication [Unknown]
  - Irritability [Recovered/Resolved]
  - Restlessness [Recovered/Resolved]
  - Asthenia [Not Recovered/Not Resolved]
  - Product dose omission issue [Unknown]
  - Blood iron decreased [Recovered/Resolved]
  - Blood testosterone decreased [Not Recovered/Not Resolved]
  - Anger [Recovered/Resolved]
  - Diarrhoea [Recovered/Resolved]

NARRATIVE: CASE EVENT DATE: 201602
